FAERS Safety Report 5271056-1 (Version None)
Quarter: 2007Q1

REPORT INFORMATION
  Report Type: 
  Country: None (occurrence: None)
  Receive Date: 20070315
  Receipt Date: 20070228
  Transmission Date: 20070707
  Serious: Yes (Other)
  Sender: FDA-Public Use
  Company Number: 2007RR-06098

PATIENT
  Age: 48 Year
  Sex: Female

DRUGS (4)
  1. PAROXETINE [Suspect]
     Indication: MAJOR DEPRESSION
     Dosage: 20 MG, QD
  2. CITALOPRAM HYDROBROMIDE [Suspect]
     Indication: MAJOR DEPRESSION
     Dosage: 20 MG, QD, 60 MG, QD
  3. BUPROPION HCL [Concomitant]
  4. SERTRALINE [Concomitant]

REACTIONS (2)
  - INSOMNIA [None]
  - RESTLESS LEGS SYNDROME [None]
